FAERS Safety Report 9384286 (Version 1)
Quarter: 2013Q3

REPORT INFORMATION
  Report Type: Report from Study
  Country: DE (occurrence: DE)
  Receive Date: 20130705
  Receipt Date: 20130705
  Transmission Date: 20140515
  Serious: Yes (Other)
  Sender: FDA-Public Use
  Company Number: PHHY2013DE070295

PATIENT
  Age: 50 Year
  Sex: Female
  Weight: 66 kg

DRUGS (2)
  1. FTY 720 [Suspect]
     Indication: MULTIPLE SCLEROSIS
     Dosage: 0.5 MG, QD
     Route: 048
     Dates: start: 20110712
  2. BISOPROLOL FUMARATE W/HYDROCHLOROTHIAZIDE [Concomitant]
     Dates: start: 200809

REACTIONS (5)
  - Musculoskeletal pain [Recovering/Resolving]
  - Inflammation [Recovered/Resolved]
  - Oedema [Recovering/Resolving]
  - Bone infarction [Recovering/Resolving]
  - Tendon disorder [Recovering/Resolving]
